FAERS Safety Report 6549599-X (Version None)
Quarter: 2010Q1

REPORT INFORMATION
  Report Type: 
  Country: None (occurrence: None)
  Receive Date: 20100125
  Receipt Date: 20100119
  Transmission Date: 20100710
  Serious: Yes (Hospitalization)
  Sender: FDA-Public Use
  Company Number: US-GILEAD-2009-0026258

PATIENT
  Sex: Female

DRUGS (8)
  1. LETAIRIS [Suspect]
     Indication: PULMONARY ARTERIAL HYPERTENSION
     Route: 048
     Dates: start: 20080730
  2. REVATIO [Concomitant]
  3. LANOXIN [Concomitant]
  4. FERROUS SULFATE TAB [Concomitant]
  5. AMIODARONE [Concomitant]
  6. LASIX [Concomitant]
  7. AMBIEN [Concomitant]
  8. COUMADIN [Concomitant]

REACTIONS (2)
  - AORTIC VALVE STENOSIS [None]
  - LEFT VENTRICLE OUTFLOW TRACT OBSTRUCTION [None]
